FAERS Safety Report 12098007 (Version 3)
Quarter: 2016Q3

REPORT INFORMATION
  Report Type: Spontaneous
  Country: CA (occurrence: CA)
  Receive Date: 20160221
  Receipt Date: 20160803
  Transmission Date: 20161109
  Serious: Yes (Other)
  Sender: FDA-Public Use
  Company Number: CA-ABBVIE-16K-028-1555207-00

PATIENT
  Age: 30 Year
  Sex: Female

DRUGS (3)
  1. HUMIRA [Suspect]
     Active Substance: ADALIMUMAB
     Route: 058
     Dates: start: 20160217
  2. HUMIRA [Suspect]
     Active Substance: ADALIMUMAB
     Indication: CROHN^S DISEASE
     Route: 058
     Dates: start: 201505, end: 201601
  3. BUPROPION. [Suspect]
     Active Substance: BUPROPION
     Indication: ANTIDEPRESSANT THERAPY
     Route: 048

REACTIONS (3)
  - Exposure during pregnancy [Unknown]
  - Abortion spontaneous [Unknown]
  - Foetal death [Unknown]

NARRATIVE: CASE EVENT DATE: 201512
